FAERS Safety Report 5508397-6 (Version None)
Quarter: 2007Q4

REPORT INFORMATION
  Report Type: 
  Country: None (occurrence: None)
  Receive Date: 20071107
  Receipt Date: 20071031
  Transmission Date: 20080405
  Serious: Yes (Other)
  Sender: FDA-Public Use
  Company Number: PHBS2007BR18292

PATIENT
  Age: 58 Year
  Sex: Female
  Weight: 71 kg

DRUGS (3)
  1. TEGRETOL [Suspect]
     Indication: DEPRESSION
     Dosage: 300 MG/D
     Route: 048
  2. ISOFLAVONE [Concomitant]
     Indication: MENOPAUSE
     Route: 065
  3. CIMICIFUGA RACEMOSA [Concomitant]
     Indication: MENOPAUSE
     Route: 065

REACTIONS (3)
  - APPENDICECTOMY [None]
  - APPENDICITIS [None]
  - PLATELET COUNT DECREASED [None]
